FAERS Safety Report 24845351 (Version 2)
Quarter: 2025Q2

REPORT INFORMATION
  Report Type: Other
  Country: US (occurrence: US)
  Receive Date: 20250115
  Receipt Date: 20250506
  Transmission Date: 20250716
  Serious: No
  Sender: TRAVERE THERAPEUTICS
  Company Number: US-TRAVERE-2024TVT01278

PATIENT
  Age: 42 Year
  Sex: Female

DRUGS (1)
  1. FILSPARI [Suspect]
     Active Substance: SPARSENTAN
     Indication: IgA nephropathy
     Route: 048
     Dates: start: 20241031

REACTIONS (8)
  - Nausea [Unknown]
  - Pain [Unknown]
  - Dyspepsia [Unknown]
  - Dehydration [Unknown]
  - Paraesthesia oral [Unknown]
  - Dizziness [Recovered/Resolved]
  - Muscular weakness [Recovering/Resolving]
  - Fatigue [Recovering/Resolving]
